FAERS Safety Report 21615830 (Version 1)
Quarter: 2022Q4

REPORT INFORMATION
  Report Type: Spontaneous
  Country: FR (occurrence: FR)
  Receive Date: 20221118
  Receipt Date: 20221118
  Transmission Date: 20230112
  Serious: Yes (Hospitalization)
  Sender: FDA-Public Use
  Company Number: None

PATIENT
  Age: 24 Year
  Sex: Male
  Weight: 69 kg

DRUGS (2)
  1. MIRTAZAPINE [Suspect]
     Active Substance: MIRTAZAPINE
     Indication: Depression
     Dosage: UNIT DOSE : 15 MG   , FREQUENCY TIME : 1 DAY , DURATION : 58 DAYS
     Route: 065
     Dates: start: 20220711, end: 20220907
  2. LAMICTAL [Suspect]
     Active Substance: LAMOTRIGINE
     Indication: Epilepsy
     Dosage: 4 DOSAGE FORMS DAILY; 1-0-1  ,FORM STRENGTH : 100 MG , DURATION : 27 DAYS
     Dates: start: 20220811, end: 20220907

REACTIONS (1)
  - Drug reaction with eosinophilia and systemic symptoms [Recovering/Resolving]

NARRATIVE: CASE EVENT DATE: 20220824
